FAERS Safety Report 17521083 (Version 1)
Quarter: 2020Q1

REPORT INFORMATION
  Report Type: Report from Study
  Country: None (occurrence: US)
  Receive Date: 20200309
  Receipt Date: 20200309
  Transmission Date: 20200409
  Serious: Yes (Other)
  Sender: FDA-Public Use
  Company Number: US-ABBVIE-20K-163-3307006-00

PATIENT
  Sex: Female

DRUGS (3)
  1. HUMIRA [Suspect]
     Active Substance: ADALIMUMAB
     Indication: PSORIATIC ARTHROPATHY
  2. HUMIRA [Suspect]
     Active Substance: ADALIMUMAB
     Indication: PSORIASIS
     Route: 058
     Dates: end: 2019
  3. COSENTYX [Concomitant]
     Active Substance: SECUKINUMAB
     Indication: PRODUCT USED FOR UNKNOWN INDICATION

REACTIONS (10)
  - Pneumothorax [Recovering/Resolving]
  - Dyspnoea [Recovered/Resolved]
  - Hypophagia [Not Recovered/Not Resolved]
  - Psoriasis [Recovering/Resolving]
  - Diarrhoea [Not Recovered/Not Resolved]
  - Fear [Recovered/Resolved]
  - Hernia [Unknown]
  - Gastrooesophageal reflux disease [Recovering/Resolving]
  - Fear of disease [Not Recovered/Not Resolved]
  - Post procedural complication [Not Recovered/Not Resolved]
